FAERS Safety Report 7281402-5 (Version None)
Quarter: 2011Q1

REPORT INFORMATION
  Report Type: 
  Country: None (occurrence: None)
  Receive Date: 20110208
  Receipt Date: 20110128
  Transmission Date: 20110831
  Serious: Yes (Hospitalization, Other)
  Sender: FDA-Public Use
  Company Number: US-ELI_LILLY_AND_COMPANY-US201101007552

PATIENT
  Age: 69 Year
  Sex: Male

DRUGS (7)
  1. CRESTOR [Concomitant]
     Dosage: 20 MG, UNKNOWN
  2. LORAZEPAM [Concomitant]
     Dosage: 0.5 MG, UNKNOWN
     Dates: start: 20110106, end: 20110125
  3. ASPIRIN [Concomitant]
     Dosage: 81 MG, UNKNOWN
  4. LEVOXYL [Concomitant]
     Indication: THYROID DISORDER
     Dosage: 0.175 MG, UNKNOWN
  5. EFFIENT [Suspect]
     Dosage: 10 MG, UNKNOWN
     Dates: start: 20101209
  6. NIACIN [Concomitant]
     Dosage: 1 D/F, DAILY (1/D)
  7. FISH OIL [Concomitant]
     Dosage: 1000 MG, 4 CAPSULES AT UNKNOWN FREQUENCY

REACTIONS (5)
  - ANXIETY [None]
  - OROPHARYNGEAL DISCOMFORT [None]
  - SURGERY [None]
  - DYSPNOEA [None]
  - SINUSITIS [None]
